FAERS Safety Report 6864877-2 (Version None)
Quarter: 2010Q3

REPORT INFORMATION
  Report Type: 
  Country: None (occurrence: None)
  Receive Date: 20100720
  Receipt Date: 20100715
  Transmission Date: 20110219
  Serious: Yes (Other)
  Sender: FDA-Public Use
  Company Number: 2010SP037468

PATIENT
  Age: 55 Year
  Sex: Female
  Weight: 50 kg

DRUGS (2)
  1. CRONOLEVEL (BETAMETHASONE SODIUM PHOSPHATE /ACETATE) (BETAMETHASNE SOD [Suspect]
     Indication: MUSCLE SPASMS
     Dates: start: 20100622
  2. DOLOFRIX [Concomitant]

REACTIONS (6)
  - ACNE [None]
  - ERYTHEMA [None]
  - ILEUS PARALYTIC [None]
  - MUSCLE ATROPHY [None]
  - MUSCLE SPASMS [None]
  - POLYDIPSIA [None]
